FAERS Safety Report 4878595-3 (Version None)
Quarter: 2006Q1

REPORT INFORMATION
  Report Type: 
  Country: None (occurrence: None)
  Receive Date: 20060110
  Receipt Date: 20060110
  Transmission Date: 20060701
  Serious: Yes (Disabling)
  Sender: FDA-Public Use
  Company Number: None

PATIENT
  Sex: Female
  Weight: 55.7924 kg

DRUGS (2)
  1. GEMZAR [Suspect]
     Indication: OVARIAN CANCER
     Dosage: 1750MG   WEEKLY X '  S ^3 WEEKS    IV DRIP
     Route: 041
     Dates: start: 20041215, end: 20050519
  2. GEMZAR [Suspect]

REACTIONS (3)
  - DIALYSIS [None]
  - HAEMOLYTIC URAEMIC SYNDROME [None]
  - NEPHROGENIC FIBROSING DERMOPATHY [None]
